FAERS Safety Report 7792159-3 (Version None)
Quarter: 2011Q4

REPORT INFORMATION
  Report Type: 
  Country: None (occurrence: None)
  Receive Date: 20111003
  Receipt Date: 20111003
  Transmission Date: 20120403
  Serious: Yes (Hospitalization)
  Sender: FDA-Public Use
  Company Number: None

PATIENT
  Age: 23 Year
  Sex: Female
  Weight: 45.359 kg

DRUGS (2)
  1. TISSUES, NOS [Suspect]
  2. DURA GRAFT [Concomitant]

REACTIONS (6)
  - STAPHYLOCOCCAL INFECTION [None]
  - VOMITING [None]
  - FURUNCLE [None]
  - POST PROCEDURAL COMPLICATION [None]
  - MENINGITIS [None]
  - TRANSMISSION OF AN INFECTIOUS AGENT VIA A MEDICINAL PRODUCT [None]
